FAERS Safety Report 5863941-4 (Version None)
Quarter: 2008Q3

REPORT INFORMATION
  Report Type: 
  Country: None (occurrence: None)
  Receive Date: 20080829
  Receipt Date: 20080822
  Transmission Date: 20090109
  Serious: Yes (Hospitalization, Other)
  Sender: FDA-Public Use
  Company Number: US-BRISTOL-MYERS SQUIBB COMPANY-14312821

PATIENT
  Age: 68 Year
  Sex: Female
  Weight: 49 kg

DRUGS (3)
  1. CETUXIMAB [Suspect]
     Indication: HEAD AND NECK CANCER
     Dosage: THERAPY STARTED ON 01-JUL-2008, LAST TOTAL DOSE WAS 1100 MG ON 18-AUG-2008.
     Dates: start: 20080708, end: 20080708
  2. CISPLATIN [Suspect]
     Indication: HEAD AND NECK CANCER
  3. RADIATION THERAPY [Suspect]
     Indication: HEAD AND NECK CANCER

REACTIONS (10)
  - ANOREXIA [None]
  - DEHYDRATION [None]
  - HAEMOGLOBINAEMIA [None]
  - HYPOALBUMINAEMIA [None]
  - HYPOCALCAEMIA [None]
  - HYPOKALAEMIA [None]
  - HYPOMAGNESAEMIA [None]
  - HYPOTENSION [None]
  - LYMPHOPENIA [None]
  - PYREXIA [None]
